FAERS Safety Report 10035266 (Version 2)
Quarter: 2014Q1

REPORT INFORMATION
  Report Type: Spontaneous
  Country: US (occurrence: US)
  Receive Date: 20140325
  Receipt Date: 20140325
  Transmission Date: 20141002
  Serious: Yes (Disabling)
  Sender: FDA-Public Use
  Company Number: US-GE HEALTHCARE MEDICAL DIAGNOSTICS-OSCN-PR-0802S-0083

PATIENT
  Age: 51 Year
  Sex: Male

DRUGS (5)
  1. OMNISCAN [Suspect]
     Indication: CENTRAL NERVOUS SYSTEM LESION
     Route: 042
     Dates: start: 19951115, end: 19951115
  2. OMNISCAN [Suspect]
     Indication: PRODUCT USED FOR UNKNOWN INDICATION
     Route: 042
     Dates: start: 19980701, end: 19980701
  3. OMNISCAN [Suspect]
     Indication: DYSARTHRIA
     Route: 042
     Dates: start: 20000112, end: 20000112
  4. OMNISCAN [Suspect]
     Indication: ABASIA
     Route: 042
     Dates: start: 20030627, end: 20030627
  5. OMNISCAN [Suspect]
     Route: 042
     Dates: start: 20040607, end: 20040607

REACTIONS (1)
  - Nephrogenic systemic fibrosis [Not Recovered/Not Resolved]
